FAERS Safety Report 19350647 (Version 1)
Quarter: 2021Q2

REPORT INFORMATION
  Report Type: Spontaneous
  Country: US (occurrence: US)
  Receive Date: 20210531
  Receipt Date: 20210531
  Transmission Date: 20210717
  Serious: No
  Sender: FDA-Public Use
  Company Number: US-BAUSCH-BL-2021-018923

PATIENT
  Sex: Female

DRUGS (1)
  1. PLENVU [Suspect]
     Active Substance: ASCORBIC ACID\POLYETHYLENE GLYCOL 3350\POTASSIUM CHLORIDE\SODIUM ASCORBATE\SODIUM CHLORIDE\SODIUM SULFATE
     Indication: COLONOSCOPY
     Dosage: PATIENT TOOK 2 DOSES OF PLENVU AT 8 AM
     Route: 048
     Dates: start: 20210526

REACTIONS (2)
  - Patient dissatisfaction with treatment [Unknown]
  - Vomiting [Unknown]

NARRATIVE: CASE EVENT DATE: 20210526
